FAERS Safety Report 6186547-9 (Version None)
Quarter: 2009Q2

REPORT INFORMATION
  Report Type: 
  Country: None (occurrence: None)
  Receive Date: 20090512
  Receipt Date: 20090430
  Transmission Date: 20091009
  Serious: Yes (Disabling, Other)
  Sender: FDA-Public Use
  Company Number: PHHY2009IE02608

PATIENT
  Sex: Female

DRUGS (9)
  1. CLOZARIL [Suspect]
     Indication: SCHIZOPHRENIA
     Dosage: 300 MG
     Dates: start: 20030204
  2. CLOZARIL [Suspect]
     Dosage: 100 MG MANE AND 175 MG NOCTE
  3. CITALOPRAM HYDROBROMIDE [Suspect]
     Dosage: 20 MG
     Route: 048
  4. PRAVASTATIN [Suspect]
     Dosage: 20 MG, UNK
     Route: 048
  5. SOLIFENACIN SUCCINATE [Suspect]
     Indication: URINARY INCONTINENCE
     Dosage: 5 MG DAILY
     Dates: start: 20080901
  6. CALCICHEW D3 [Suspect]
     Route: 048
  7. EPILIM [Concomitant]
     Dosage: 1400 MG, UNK
     Route: 048
  8. LACTULOSE [Concomitant]
     Dosage: 15 ML, TID
  9. NULYTELY [Concomitant]

REACTIONS (9)
  - CONSTIPATION [None]
  - DIARRHOEA [None]
  - DISEASE PROGRESSION [None]
  - ELECTROENCEPHALOGRAM ABNORMAL [None]
  - FAECAL INCONTINENCE [None]
  - FAECALOMA [None]
  - GRAND MAL CONVULSION [None]
  - PAROTITIS [None]
  - URINARY INCONTINENCE [None]
